FAERS Safety Report 12529907 (Version 1)
Quarter: 2016Q3

REPORT INFORMATION
  Report Type: Spontaneous
  Country: US (occurrence: None)
  Receive Date: 20160705
  Receipt Date: 20160705
  Transmission Date: 20161109
  Serious: Yes (Death)
  Sender: FDA-Public Use
  Company Number: None

PATIENT
  Age: 72 Year
  Sex: Male
  Weight: 79.38 kg

DRUGS (1)
  1. MUSE [Suspect]
     Active Substance: ALPROSTADIL

REACTIONS (3)
  - Therapy change [None]
  - Pulse absent [None]
  - Drug ineffective [None]

NARRATIVE: CASE EVENT DATE: 20160618
